FAERS Safety Report 13926215 (Version 3)
Quarter: 2017Q3

REPORT INFORMATION
  Report Type: Spontaneous
  Country: US (occurrence: US)
  Receive Date: 20170831
  Receipt Date: 20170929
  Transmission Date: 20171127
  Serious: Yes (Other)
  Sender: FDA-Public Use
  Company Number: US-PFIZER INC-2017373790

PATIENT
  Age: 73 Year
  Sex: Female
  Weight: 77.98 kg

DRUGS (2)
  1. COUMADIN [Suspect]
     Active Substance: WARFARIN SODIUM
     Dosage: UNK
  2. IBRANCE [Suspect]
     Active Substance: PALBOCICLIB
     Indication: BREAST CANCER METASTATIC
     Dosage: 125 MG, CYCLIC (1 DAILY 3 WEEKS ON, ALSO REPORTED AS DAYS 1-21, AND 1 WEEK OFF)
     Route: 048
     Dates: start: 20170809, end: 20170828

REACTIONS (3)
  - Diarrhoea [Unknown]
  - Alopecia [Unknown]
  - Breast haemorrhage [Unknown]
